FAERS Safety Report 8935159 (Version 1)
Quarter: 2012Q4

REPORT INFORMATION
  Report Type: 
  Country: US (occurrence: US)
  Receive Date: 20121129
  Receipt Date: 20121129
  Transmission Date: 20130627
  Serious: Yes (Life-Threatening, Hospitalization, Other)
  Sender: FDA-Public Use
  Company Number: US-B.I. PHARMACEUTICALS,INC./RIDGEFIELD-2012-BI-01291GD

PATIENT
  Age: 80 Year
  Sex: Male

DRUGS (2)
  1. DABIGATRAN ETEXILATE [Suspect]
     Indication: ATRIAL FIBRILLATION
     Dosage: 300 mg
     Route: 048
  2. ASPIRIN [Suspect]
     Indication: ATRIAL FIBRILLATION
     Dosage: 81 mg

REACTIONS (10)
  - Respiratory failure [Unknown]
  - Haemothorax [Unknown]
  - Pneumothorax [Unknown]
  - Pulmonary contusion [Unknown]
  - Pleural effusion [Unknown]
  - Ecchymosis [Unknown]
  - Fall [Unknown]
  - Chest pain [Unknown]
  - Orthopnoea [Unknown]
  - Rib fracture [Unknown]
